FAERS Safety Report 6566361-2 (Version None)
Quarter: 2010Q1

REPORT INFORMATION
  Report Type: 
  Country: None (occurrence: None)
  Receive Date: 20100202
  Receipt Date: 20100122
  Transmission Date: 20100710
  Serious: Yes (Hospitalization)
  Sender: FDA-Public Use
  Company Number: US-ELI_LILLY_AND_COMPANY-US201001004793

PATIENT
  Sex: Female

DRUGS (15)
  1. FORTEO [Suspect]
     Indication: OSTEOPOROSIS
     Dosage: 20 UG, DAILY (1/D)
     Dates: start: 20090601
  2. PREDNISONE [Concomitant]
     Dosage: 2.5 MG, DAILY (1/D)
  3. SUCRALFATE [Concomitant]
     Dosage: 1 G, 3/D
  4. NEXIUM [Concomitant]
     Dosage: 40 MG, DAILY (1/D)
  5. METOPROLOL TARTRATE [Concomitant]
     Dosage: 12.5 MG, 2/D
  6. FERROUS SULFATE TAB [Concomitant]
     Dosage: 75 MG, 2/D
  7. HYDROXYCHLOROQUINE SULFATE [Concomitant]
     Dosage: 200 MG, DAILY (1/D)
  8. METHOTREXATE [Concomitant]
     Dosage: 12.5 MG, DAILY (1/D)
  9. FOLIC ACID [Concomitant]
     Dosage: 7 MG, WEEKLY (1/W)
  10. BABY ASPIRIN [Concomitant]
     Dosage: 1 D/F, DAILY (1/D)
  11. VITAMIN B COMPLEX CAP [Concomitant]
     Dosage: 1000 U, DAILY (1/D)
  12. LIDODERM [Concomitant]
     Dosage: 700 MG, UNK
  13. OSCAL [Concomitant]
     Dosage: 1 D/F, DAILY (1/D)
  14. TYLENOL                                 /SCH/ [Concomitant]
     Dosage: 1 D/F, AS NEEDED
  15. HUMIRA [Concomitant]

REACTIONS (3)
  - GAIT DISTURBANCE [None]
  - INFECTION [None]
  - MALAISE [None]
